FAERS Safety Report 7861487-5 (Version None)
Quarter: 2011Q4

REPORT INFORMATION
  Report Type: 
  Country: None (occurrence: None)
  Receive Date: 20111027
  Receipt Date: 20111020
  Transmission Date: 20120403
  Serious: Yes (Other)
  Sender: FDA-Public Use
  Company Number: US-AMGEN-USASP2011054680

PATIENT
  Sex: Female

DRUGS (8)
  1. PROLIA [Suspect]
     Indication: OSTEOPOROSIS POSTMENOPAUSAL
     Dosage: 60 MG, Q6MO
     Dates: start: 20110708, end: 20110714
  2. FIORICET [Concomitant]
  3. MINERAL TAB [Concomitant]
  4. HYDROCODONE BITARTRATE [Concomitant]
  5. POTASSIUM CHLORIDE [Concomitant]
     Dosage: 1 MEQ, QD
  6. MULTIVITAMIN                       /00097801/ [Concomitant]
  7. VITAMIN D [Concomitant]
  8. SODIUM CHLORIDE [Concomitant]
     Dosage: 1 G, QD

REACTIONS (3)
  - SERUM FERRITIN DECREASED [None]
  - BLOOD CREATININE DECREASED [None]
  - BLOOD UREA DECREASED [None]
